FAERS Safety Report 6558588-0 (Version None)
Quarter: 2010Q1

REPORT INFORMATION
  Report Type: 
  Country: None (occurrence: None)
  Receive Date: 20100129
  Receipt Date: 20100119
  Transmission Date: 20100710
  Serious: Yes (Hospitalization, Other)
  Sender: FDA-Public Use
  Company Number: US-PFIZER INC-2004066646

PATIENT
  Sex: Male
  Weight: 93.44 kg

DRUGS (18)
  1. LIPITOR [Suspect]
     Indication: BLOOD CHOLESTEROL INCREASED
     Route: 048
  2. LIPITOR [Suspect]
     Indication: CEREBROVASCULAR ACCIDENT
  3. NORVASC [Suspect]
     Indication: HYPERTENSION
     Route: 048
  4. NORVASC [Suspect]
     Indication: CEREBROVASCULAR ACCIDENT
  5. CLOPIDOGREL [Concomitant]
     Route: 048
  6. ESOMEPRAZOLE [Concomitant]
     Indication: DYSPEPSIA
     Route: 048
  7. ATENOLOL [Concomitant]
     Route: 048
  8. DIAZEPAM [Concomitant]
     Route: 048
  9. ISOSORBIDE MONONITRATE [Concomitant]
     Route: 048
  10. ACETYLSALICYLIC ACID [Concomitant]
     Dosage: 325 MG, UNK
     Route: 065
  11. LASIX [Concomitant]
  12. METOPROLOL [Concomitant]
  13. NITRO-DUR [Concomitant]
     Dosage: UNK
     Route: 062
  14. POTASSIUM [Concomitant]
  15. VALSARTAN [Concomitant]
  16. DETROL LA [Concomitant]
     Indication: HYPERTONIC BLADDER
  17. SULAR [Concomitant]
  18. INSULIN [Concomitant]

REACTIONS (11)
  - ARTHRITIS [None]
  - BURSITIS [None]
  - CHEST PAIN [None]
  - FALL [None]
  - GASTROOESOPHAGEAL REFLUX DISEASE [None]
  - HEART VALVE REPLACEMENT [None]
  - HYPERTONIC BLADDER [None]
  - MYOCARDIAL INFARCTION [None]
  - PROSTATE CANCER [None]
  - STENT PLACEMENT [None]
  - VASCULAR GRAFT [None]
